FAERS Safety Report 6221642-7 (Version None)
Quarter: 2009Q2

REPORT INFORMATION
  Report Type: 
  Country: None (occurrence: None)
  Receive Date: 20090610
  Receipt Date: 20090602
  Transmission Date: 20091009
  Serious: Yes (Other)
  Sender: FDA-Public Use
  Company Number: BE-GILEAD-2009-0022387

PATIENT
  Age: 54 Year
  Sex: Female

DRUGS (4)
  1. VIREAD [Suspect]
     Dates: start: 20040101
  2. LOPINAVIR AND RITONAVIR [Concomitant]
     Dates: start: 20040101
  3. LAMIVUDINE [Concomitant]
     Dates: start: 20040101
  4. DICLOFENAC SODIUM [Concomitant]
     Indication: PAIN

REACTIONS (3)
  - METABOLIC ACIDOSIS [None]
  - RENAL FAILURE ACUTE [None]
  - RENAL TUBULAR DISORDER [None]
